FAERS Safety Report 7832864-3 (Version None)
Quarter: 2011Q4

REPORT INFORMATION
  Report Type: 
  Country: None (occurrence: None)
  Receive Date: 20111024
  Receipt Date: 20090806
  Transmission Date: 20120403
  Serious: No
  Sender: FDA-Public Use
  Company Number: 2009BI024740

PATIENT
  Sex: Female

DRUGS (1)
  1. TYSABRI [Suspect]
     Indication: MULTIPLE SCLEROSIS
     Route: 042
     Dates: start: 20090730

REACTIONS (12)
  - BRONCHITIS [None]
  - MULTIPLE SCLEROSIS RELAPSE [None]
  - SINUSITIS [None]
  - HEADACHE [None]
  - FATIGUE [None]
  - BENIGN BREAST NEOPLASM [None]
  - GAIT DISTURBANCE [None]
  - INFUSION SITE HAEMORRHAGE [None]
  - NAUSEA [None]
  - ABDOMINAL DISCOMFORT [None]
  - TRIGEMINAL NEURALGIA [None]
  - OPTIC NERVE DISORDER [None]
